FAERS Safety Report 20250285 (Version 1)
Quarter: 2021Q4

REPORT INFORMATION
  Report Type: Spontaneous
  Country: DE (occurrence: DE)
  Receive Date: 20211229
  Receipt Date: 20211229
  Transmission Date: 20220303
  Serious: Yes (Hospitalization)
  Sender: FDA-Public Use
  Company Number: DE-ADRED-07182-01

PATIENT
  Age: 80 Year
  Sex: Female

DRUGS (7)
  1. ARIPIPRAZOLE [Suspect]
     Active Substance: ARIPIPRAZOLE
     Dosage: 20 MILLIGRAM DAILY; 1-0-0-0,MEDICATION ERRORS
  2. OLANZAPINE [Suspect]
     Active Substance: OLANZAPINE
     Dosage: 20 MILLIGRAM DAILY;   0-0-1-0,OLANZAPIN ABZ 20MG,MEDICATION ERRORS
  3. OLANZAPINE [Suspect]
     Active Substance: OLANZAPINE
     Dosage: 5 MILLIGRAM DAILY;  1-0-0-0,OLANZAPIN-1A PHARMA 5MG,MEDICATION ERRORS
  4. PIPAMPERONE HYDROCHLORIDE [Suspect]
     Active Substance: PIPAMPERONE HYDROCHLORIDE
     Dosage: 40 MG, 0.5-0-0-1, ,PIPAMPERON HEXAL 40MG ,MEDICATION ERRORS
  5. TORSEMIDE [Concomitant]
     Active Substance: TORSEMIDE
     Dosage: .5 DOSAGE FORMS DAILY; 5 MG, 0.5-0-0-0,TORASEMID-RATIOPHARM 5MG
  6. AMLODIPINE BESYLATE [Concomitant]
     Active Substance: AMLODIPINE BESYLATE
     Dosage: 1 DOSAGE FORMS DAILY; 5 MG, 0.5-0-0.5-0,AMLODIPIN-1A PHARMA 5MG N
  7. LEVOTHYROXINE SODIUM [Concomitant]
     Active Substance: LEVOTHYROXINE SODIUM
     Dosage: 100 MICROGRAM DAILY;  1-0-0-0,L-THYROXINE HENNING 100 MICROGRAMS / ML

REACTIONS (4)
  - Angina pectoris [Unknown]
  - Syncope [Unknown]
  - Depressed level of consciousness [Unknown]
  - Medication error [Unknown]
